FAERS Safety Report 4296920-1 (Version None)
Quarter: 2004Q1

REPORT INFORMATION
  Report Type: 
  Country: None (occurrence: None)
  Receive Date: 20040213
  Receipt Date: 20040202
  Transmission Date: 20041129
  Serious: Yes (Hospitalization, Other)
  Sender: FDA-Public Use
  Company Number: 044-0945-M0100204

PATIENT
  Age: 50 Year
  Sex: Male
  Weight: 75 kg

DRUGS (6)
  1. NEURONTIN [Suspect]
     Indication: DIABETIC NEUROPATHY
     Dosage: 900 MG (300 MG, TID), ORAL
     Route: 048
  2. HUMAN MIXTARD (INSULIN HUMAN, ISOPHANE) [Concomitant]
  3. METFORMIN HCL [Concomitant]
  4. AMITRIPTYLINE HCL [Concomitant]
  5. DIHYDROCODEINE (DIHYDROCODEINE) [Concomitant]
  6. RAMIPRIL [Concomitant]

REACTIONS (3)
  - HEPATIC STEATOSIS [None]
  - HEPATOCELLULAR DAMAGE [None]
  - JAUNDICE CHOLESTATIC [None]
